FAERS Safety Report 12496497 (Version 6)
Quarter: 2016Q3

REPORT INFORMATION
  Report Type: Spontaneous
  Country: GB (occurrence: GB)
  Receive Date: 20160624
  Receipt Date: 20160912
  Transmission Date: 20161109
  Serious: Yes (Life-Threatening, Other)
  Sender: FDA-Public Use
  Company Number: GB-GLAXOSMITHKLINE-GB2016089008

PATIENT
  Age: 40 Year
  Sex: Female
  Weight: 57 kg

DRUGS (13)
  1. FLAGYL [Suspect]
     Active Substance: METRONIDAZOLE\METRONIDAZOLE HYDROCHLORIDE
     Indication: INFECTION PROPHYLAXIS
     Dosage: 1 G, UNK
     Route: 054
     Dates: start: 20160608, end: 20160608
  2. ONDANSETRON [Suspect]
     Active Substance: ONDANSETRON
     Indication: PROPHYLAXIS OF NAUSEA AND VOMITING
     Dosage: 4 MG, UNK
     Route: 042
     Dates: start: 20160608, end: 20160608
  3. PREDNISOLONE. [Concomitant]
     Active Substance: PREDNISOLONE
     Dosage: UNK
  4. PROPOFOL. [Suspect]
     Active Substance: PROPOFOL
     Indication: GENERAL ANAESTHESIA
     Dosage: 200 MG, UNK
     Route: 042
     Dates: start: 20160608, end: 20160608
  5. SUPRECUR [Concomitant]
     Active Substance: BUSERELIN
     Dosage: UNK
  6. VOLTAROL [Suspect]
     Active Substance: DICLOFENAC SODIUM
     Indication: PREOPERATIVE CARE
     Dosage: 1 DF, UNK
     Route: 054
     Dates: start: 20160608, end: 20160608
  7. ALFENTANIL. [Suspect]
     Active Substance: ALFENTANIL
     Indication: GENERAL ANAESTHESIA
     Dosage: 125 ?G, UNK, UNKNOWN
     Route: 042
     Dates: start: 20160608, end: 20160608
  8. OVITRELLE [Concomitant]
     Active Substance: CHORIOGONADOTROPIN ALFA
     Dosage: UNK
     Dates: start: 20160606, end: 20160606
  9. ZOMACTON [Concomitant]
     Active Substance: SOMATROPIN
     Dosage: UNK
  10. CEFOTAXIME [Suspect]
     Active Substance: CEFOTAXIME SODIUM
     Indication: INFECTION PROPHYLAXIS
     Dosage: 1 G, UNK
     Route: 042
     Dates: start: 20160608, end: 20160608
  11. ASPIRIN. [Concomitant]
     Active Substance: ASPIRIN
     Dosage: UNK
  12. FOLIC ACID. [Concomitant]
     Active Substance: FOLIC ACID
     Dosage: UNK
  13. GONAL-F [Concomitant]
     Active Substance: FOLLITROPIN
     Dosage: UNK

REACTIONS (1)
  - Anaphylactic reaction [Recovering/Resolving]

NARRATIVE: CASE EVENT DATE: 20160608
